FAERS Safety Report 14713034 (Version 7)
Quarter: 2018Q4

REPORT INFORMATION
  Report Type: Spontaneous
  Country: US (occurrence: US)
  Receive Date: 20180404
  Receipt Date: 20181115
  Transmission Date: 20190204
  Serious: Yes (Other)
  Sender: FDA-Public Use
  Company Number: US-PFIZER INC-2018132392

PATIENT
  Age: 74 Year
  Sex: Female

DRUGS (3)
  1. METHOTREXATE. [Concomitant]
     Active Substance: METHOTREXATE
     Dosage: 20 MG, WEEKLY
  2. FOLIC ACID. [Concomitant]
     Active Substance: FOLIC ACID
  3. XELJANZ XR [Suspect]
     Active Substance: TOFACITINIB CITRATE
     Indication: RHEUMATOID ARTHRITIS
     Dosage: 11 MG, 1X/DAY
     Route: 048
     Dates: start: 20180328

REACTIONS (20)
  - Throat irritation [Unknown]
  - Anxiety [Unknown]
  - Alopecia [Unknown]
  - Memory impairment [Unknown]
  - Discomfort [Unknown]
  - Asthenia [Unknown]
  - Acne [Recovering/Resolving]
  - Lymphadenopathy [Not Recovered/Not Resolved]
  - Laziness [Unknown]
  - Oropharyngeal pain [Unknown]
  - Cataract [Not Recovered/Not Resolved]
  - Increased appetite [Unknown]
  - Product dose omission [Unknown]
  - Seborrhoea [Recovering/Resolving]
  - Foreign body sensation in eyes [Not Recovered/Not Resolved]
  - Rhinalgia [Unknown]
  - Aphonia [Unknown]
  - Nausea [Not Recovered/Not Resolved]
  - Skin lesion [Unknown]
  - Solar lentigo [Recovering/Resolving]

NARRATIVE: CASE EVENT DATE: 20180328
